FAERS Safety Report 4371756-1 (Version None)
Quarter: 2004Q2

REPORT INFORMATION
  Report Type: 
  Country: None (occurrence: None)
  Receive Date: 20040604
  Receipt Date: 20040604
  Transmission Date: 20050107
  Serious: Yes (Hospitalization)
  Sender: FDA-Public Use
  Company Number: None

PATIENT
  Sex: Male
  Weight: 84.5 kg

DRUGS (13)
  1. TAXOTERE [Suspect]
     Indication: PROSTATE CANCER METASTATIC
     Dosage: 36 MG/M2 Q WEEKLY IV
     Route: 042
     Dates: start: 20040506, end: 20040506
  2. DEXAMETHASONE [Suspect]
     Indication: PROSTATE CANCER METASTATIC
     Dosage: 0.75 MG BID ORAL
     Route: 048
     Dates: start: 20040506, end: 20040519
  3. TRIAMTERENE AND HYDROCHLOROTHIAZIDE [Concomitant]
  4. TIAZAC [Concomitant]
  5. ZOCOR [Concomitant]
  6. VIT B6 [Concomitant]
  7. MULTI VIT [Concomitant]
  8. SSS TONIC IRON SUPPLEMENT [Concomitant]
  9. LUPRON [Concomitant]
  10. PROTONIX [Concomitant]
  11. LACFINEX [Concomitant]
  12. TEQUIN [Concomitant]
  13. COLACE [Concomitant]

REACTIONS (1)
  - UNEVALUABLE EVENT [None]
